FAERS Safety Report 7375691-6 (Version None)
Quarter: 2011Q1

REPORT INFORMATION
  Report Type: 
  Country: None (occurrence: None)
  Receive Date: 20110325
  Receipt Date: 20110317
  Transmission Date: 20110831
  Serious: Yes (Hospitalization)
  Sender: FDA-Public Use
  Company Number: DE-ROCHE-763980

PATIENT

DRUGS (2)
  1. TOCILIZUMAB [Suspect]
     Route: 065
     Dates: end: 20101018
  2. TOCILIZUMAB [Suspect]
     Dosage: THERAPY COMPLETED ON 28-OCT-2010
     Route: 065
     Dates: end: 20101028

REACTIONS (2)
  - SKIN ULCER [None]
  - PERIPHERAL ARTERIAL OCCLUSIVE DISEASE [None]
